FAERS Safety Report 13038562 (Version 9)
Quarter: 2021Q1

REPORT INFORMATION
  Report Type: Report from Study
  Country: KR (occurrence: KR)
  Receive Date: 20161219
  Receipt Date: 20210204
  Transmission Date: 20210419
  Serious: Yes (Hospitalization)
  Sender: FDA-Public Use
  Company Number: KR-ROCHE-1868341

PATIENT
  Age: 47 Year
  Sex: Female
  Weight: 60.8 kg

DRUGS (6)
  1. LOPERAMIDE [Concomitant]
     Active Substance: LOPERAMIDE
     Indication: DIARRHOEA
     Dates: start: 20160527
  2. POLATUZUMAB VEDOTIN. [Suspect]
     Active Substance: POLATUZUMAB VEDOTIN
     Indication: DIFFUSE LARGE B-CELL LYMPHOMA
     Dosage: THE MOST RECENT DOSE AND END DATE, PRIOR TO THE EVENT ONSET: 08/JUN/2016 AT 18:40 (109.8 MG)?FREQUEN
     Route: 042
     Dates: start: 20160120
  3. DIOCTAHEDRAL SMECTITE [Concomitant]
     Active Substance: MONTMORILLONITE
     Indication: DIARRHOEA
     Dates: start: 20160531
  4. BENDAMUSTINE [Suspect]
     Active Substance: BENDAMUSTINE
     Indication: DIFFUSE LARGE B-CELL LYMPHOMA
     Dosage: THE MOST RECENT DOSE AND END DATE, PRIOR TO THE EVENT ONSET: 09/JUN/2016 AT 10:29 (114.8 MG)?FREQUEN
     Route: 042
     Dates: start: 20160120
  5. MEGESTROL [Concomitant]
     Active Substance: MEGESTROL
     Indication: DECREASED APPETITE
     Dates: start: 20160930, end: 20161208
  6. OBINUTUZUMAB. [Suspect]
     Active Substance: OBINUTUZUMAB
     Indication: DIFFUSE LARGE B-CELL LYMPHOMA
     Dosage: THE MOST RECENT DOSE AND END DATE, PRIOR TO THE EVENT ONSET: 08/JUN/2016 AT 14:05 ?FREQUENCY AS PER
     Route: 042
     Dates: start: 20160119

REACTIONS (1)
  - Cytomegalovirus chorioretinitis [Recovered/Resolved]

NARRATIVE: CASE EVENT DATE: 20161209
